FAERS Safety Report 6163850-X (Version None)
Quarter: 2009Q2

REPORT INFORMATION
  Report Type: 
  Country: None (occurrence: None)
  Receive Date: 20090422
  Receipt Date: 20080318
  Transmission Date: 20091009
  Serious: Yes (Disabling)
  Sender: FDA-Public Use
  Company Number: US-BRISTOL-MYERS SQUIBB COMPANY-14118681

PATIENT
  Age: 50 Year
  Sex: Male

DRUGS (3)
  1. HYDREA [Suspect]
     Indication: POLYCYTHAEMIA VERA
     Route: 048
     Dates: start: 20030101, end: 20080125
  2. LISINOPRIL [Concomitant]
  3. ACIPHEX [Concomitant]

REACTIONS (1)
  - SKIN LESION [None]
